FAERS Safety Report 6212381-7 (Version None)
Quarter: 2009Q2

REPORT INFORMATION
  Report Type: 
  Country: None (occurrence: None)
  Receive Date: 20090603
  Receipt Date: 20090527
  Transmission Date: 20091009
  Serious: Yes (Hospitalization)
  Sender: FDA-Public Use
  Company Number: JP-SP-2009-02192

PATIENT
  Age: 76 Year
  Sex: Male

DRUGS (6)
  1. IMMUCYST [Suspect]
     Indication: BLADDER CANCER
     Route: 043
     Dates: start: 20080325, end: 20080603
  2. IMMUCYST [Suspect]
     Route: 043
     Dates: start: 20080325, end: 20080603
  3. AMLODIPINE BESYLATE [Concomitant]
     Route: 048
     Dates: start: 20080123
  4. ISONIAZID [Concomitant]
     Indication: CYSTITIS
     Route: 048
     Dates: start: 20080512, end: 20080701
  5. LOXOPROFEN SODIUM [Concomitant]
     Dates: start: 20080512, end: 20080707
  6. LEVOFLOXACIN [Concomitant]
     Route: 048
     Dates: start: 20080617, end: 20080701

REACTIONS (7)
  - BLADDER IRRITATION [None]
  - CYSTITIS [None]
  - HEPATIC FUNCTION ABNORMAL [None]
  - JAUNDICE [None]
  - MALAISE [None]
  - POLLAKIURIA [None]
  - URTICARIA [None]
